FAERS Safety Report 4533471-0 (Version None)
Quarter: 2004Q4

REPORT INFORMATION
  Report Type: 
  Country: None (occurrence: None)
  Receive Date: 20041221
  Receipt Date: 20030605
  Transmission Date: 20050328
  Serious: Yes (Disabling, Other)
  Sender: FDA-Public Use
  Company Number: US-MERCK-0306USA00882

PATIENT
  Age: 67 Year
  Sex: Female

DRUGS (12)
  1. VIOXX [Suspect]
     Route: 048
  2. MONOPRIL [Concomitant]
     Route: 065
  3. ZOCOR [Concomitant]
     Route: 065
  4. MURO 128 OPHTHALMIC OINTMENT [Concomitant]
     Route: 047
  5. ARTIFICIAL TEARS [Concomitant]
     Route: 047
  6. LIPITOR [Concomitant]
     Route: 065
  7. ESTRADIOL [Concomitant]
     Route: 065
  8. PROZAC [Concomitant]
     Route: 065
  9. ULTRAM [Concomitant]
     Route: 065
  10. MOTRIN [Concomitant]
     Route: 065
  11. ATIVAN [Concomitant]
     Route: 065
  12. ANALGESIC OR ANESTHETIC (UNSPECIFIED) [Concomitant]
     Route: 065
     Dates: start: 20030801

REACTIONS (24)
  - ADVERSE EVENT [None]
  - BLOOD CHOLESTEROL INCREASED [None]
  - BRONCHITIS [None]
  - BURSITIS [None]
  - CARDIAC VALVE DISEASE [None]
  - CARDIOMEGALY [None]
  - CATARACT [None]
  - CHONDROMALACIA [None]
  - CHRONIC OBSTRUCTIVE AIRWAYS DISEASE [None]
  - CONJUNCTIVAL HAEMORRHAGE [None]
  - DIVERTICULITIS [None]
  - EAR CONGESTION [None]
  - FALL [None]
  - JOINT EFFUSION [None]
  - KERATITIS [None]
  - LUMBAR RADICULOPATHY [None]
  - LYMPHADENOPATHY [None]
  - MENISCUS LESION [None]
  - OSTEOARTHRITIS [None]
  - OSTEOPETROSIS [None]
  - ROAD TRAFFIC ACCIDENT [None]
  - SINUSITIS [None]
  - SPINAL COLUMN STENOSIS [None]
  - SYNCOPE [None]
